FAERS Safety Report 8902413 (Version 1)
Quarter: 2012Q4

REPORT INFORMATION
  Report Type: 
  Country: US (occurrence: US)
  Receive Date: 20121112
  Receipt Date: 20121112
  Transmission Date: 20130627
  Serious: Yes (Hospitalization)
  Sender: FDA-Public Use
  Company Number: US-UCBSA-069431

PATIENT
  Age: 21 Year
  Sex: Female
  Weight: 72.57 kg

DRUGS (5)
  1. KEPPRA XR [Suspect]
     Indication: GRAND MAL CONVULSION
     Dosage: TOTAL DAILY DOSE: 3000 MG, MISSED HER DOSES
     Route: 048
  2. FOLIC ACID [Concomitant]
     Indication: PROPHYLAXIS
     Route: 048
  3. FOLIC ACID [Concomitant]
     Indication: MEDICAL DIET
     Route: 048
  4. TOPOMAX [Concomitant]
     Indication: GRAND MAL CONVULSION
     Route: 048
     Dates: start: 2010
  5. DEPO-PROVERA [Concomitant]
     Indication: CONTRACEPTION
     Route: 058

REACTIONS (2)
  - Convulsion [Recovered/Resolved]
  - Drug dose omission [Unknown]
